FAERS Safety Report 11347424 (Version 1)
Quarter: 2015Q3

REPORT INFORMATION
  Report Type: Spontaneous
  Country: US (occurrence: US)
  Receive Date: 20150803
  Receipt Date: 20150803
  Transmission Date: 20151125
  Serious: No
  Sender: FDA-Public Use
  Company Number: US-ELI_LILLY_AND_COMPANY-US201106008131

PATIENT
  Age: 45 Year
  Sex: Male

DRUGS (2)
  1. ZYPREXA [Suspect]
     Active Substance: OLANZAPINE
     Indication: SCHIZOPHRENIA, UNDIFFERENTIATED TYPE
     Dosage: 15 MG, QD
     Dates: start: 201010
  2. ZYPREXA [Suspect]
     Active Substance: OLANZAPINE
     Dosage: 30 MG, UNK

REACTIONS (8)
  - Vocal cord cyst [Unknown]
  - Dysphonia [Unknown]
  - Oropharyngeal pain [Unknown]
  - Pharyngeal inflammation [Unknown]
  - Overdose [Unknown]
  - Pharyngeal oedema [Unknown]
  - Therapy change [Unknown]
  - Pharyngeal erythema [Unknown]
